FAERS Safety Report 8817444 (Version 1)
Quarter: 2012Q4

REPORT INFORMATION
  Report Type: 
  Country: GB (occurrence: GB)
  Receive Date: 20121001
  Receipt Date: 20121001
  Transmission Date: 20130627
  Serious: Yes (Other)
  Sender: FDA-Public Use
  Company Number: GB-ASTELLAS-2011EU006944

PATIENT
  Sex: Female
  Weight: 82 kg

DRUGS (13)
  1. VESICARE [Suspect]
     Indication: POLLAKIURIA
     Dosage: 10 mg, UID/QD
     Route: 048
     Dates: start: 20110810, end: 20110928
  2. DIAZEPAM [Concomitant]
     Dosage: 1 DF, bid
     Route: 065
  3. TILDIEM [Concomitant]
     Dosage: UNK
     Route: 065
  4. AMIODARONE [Concomitant]
     Dosage: 1 DF, UID/QD
     Route: 065
  5. SIMVASTATIN [Concomitant]
     Dosage: 1 DF, UID/QD
     Route: 065
  6. PARACETAMOL [Concomitant]
     Dosage: UNK mg, Unknown/D
     Route: 065
  7. TRIMOVATE [Concomitant]
     Dosage: UNK
     Route: 065
  8. NITROLINGUAL [Concomitant]
     Dosage: UNK
     Route: 065
  9. METOCLOPRAMIDE HYDROCHLORDIE [Concomitant]
     Dosage: UNK mg, UNK
     Route: 065
  10. SENNA [Concomitant]
     Dosage: UNK
     Route: 065
  11. LOPRAZOLAM [Concomitant]
     Dosage: 2 DF, prn
     Route: 065
  12. PEPPERMINT OIL [Concomitant]
     Dosage: UNK
     Route: 065
  13. ASPIRIN [Concomitant]
     Dosage: 1 DF, UID/QD
     Route: 065

REACTIONS (3)
  - Drug ineffective [Unknown]
  - Angina pectoris [Recovered/Resolved]
  - Memory impairment [Not Recovered/Not Resolved]
